FAERS Safety Report 8533913-X (Version None)
Quarter: 2012Q3

REPORT INFORMATION
  Report Type: 
  Country: None (occurrence: None)
  Receive Date: 20120703
  Receipt Date: 20120621
  Transmission Date: 20120928
  Serious: Yes (Hospitalization)
  Sender: FDA-Public Use
  Company Number: 2012032695

PATIENT
  Age: 55 Year
  Sex: Female
  Weight: 92.0802 kg

DRUGS (10)
  1. HIZENTRA [Suspect]
     Indication: HYPOGAMMAGLOBULINAEMIA
     Dosage: 24 G 1/WEEK, 4 GM 20 ML VIAL, 5 SITES OVER 3-4 HOURS, SUBCUTANEOUS
     Route: 058
     Dates: start: 20120621
  2. LAMICTAL [Concomitant]
  3. SYMBICORT [Concomitant]
  4. CYMBALTA [Concomitant]
  5. TREXIMET (SUMATRIPTAN) [Concomitant]
  6. CARBAMAZEPINE [Concomitant]
  7. CLONAZEPAM [Concomitant]
  8. OXYGEN (OXYGEN) [Concomitant]
  9. ZOFRAN [Concomitant]
  10. DEXAMETHASONE SODIUM PHOSPHATE [Concomitant]

REACTIONS (7)
  - DIZZINESS [None]
  - ERYTHEMA [None]
  - DYSPEPSIA [None]
  - HYPOTENSION [None]
  - ANXIETY [None]
  - BURNING SENSATION [None]
  - PAIN [None]
